FAERS Safety Report 23108009 (Version 1)
Quarter: 2023Q4

REPORT INFORMATION
  Report Type: Spontaneous
  Country: GB (occurrence: GB)
  Receive Date: 20231026
  Receipt Date: 20231026
  Transmission Date: 20240110
  Serious: Yes (Hospitalization, Other)
  Sender: FDA-Public Use
  Company Number: GB-MHRA-MED-202310172323156120-GLVHJ

PATIENT
  Age: 66 Year
  Sex: Male
  Weight: 84 kg

DRUGS (1)
  1. APIXABAN [Suspect]
     Active Substance: APIXABAN
     Indication: Product used for unknown indication
     Dosage: UNK

REACTIONS (4)
  - Suicide attempt [Recovered/Resolved]
  - Disorientation [Recovered/Resolved]
  - Delusion [Recovered/Resolved]
  - Paranoia [Recovered/Resolved]

NARRATIVE: CASE EVENT DATE: 20221001
